FAERS Safety Report 5798182-2 (Version None)
Quarter: 2008Q3

REPORT INFORMATION
  Report Type: 
  Country: None (occurrence: None)
  Receive Date: 20080702
  Receipt Date: 20080626
  Transmission Date: 20090109
  Serious: Yes (Other)
  Sender: FDA-Public Use
  Company Number: A0734966A

PATIENT
  Age: 67 Year
  Sex: Male

DRUGS (2)
  1. AVODART [Suspect]
     Indication: DRUG USE FOR UNKNOWN INDICATION
     Route: 065
     Dates: start: 20080404, end: 20080527
  2. ANGIOTENSIN-CONVERTING ENZYME INHIBITOR (UNSPECIFIED) [Concomitant]

REACTIONS (3)
  - ANGIOEDEMA [None]
  - SWELLING [None]
  - URTICARIA [None]
